FAERS Safety Report 23391237 (Version 2)
Quarter: 2025Q2

REPORT INFORMATION
  Report Type: Spontaneous
  Country: US (occurrence: US)
  Receive Date: 20240111
  Receipt Date: 20250422
  Transmission Date: 20250717
  Serious: Yes (Hospitalization, Other)
  Sender: DR REDDYS
  Company Number: US-MLMSERVICE-20231207-4696894-1

PATIENT
  Age: 14 Year
  Sex: Female

DRUGS (17)
  1. FLUOXETINE [Suspect]
     Active Substance: FLUOXETINE HYDROCHLORIDE
     Indication: Major depression
     Dosage: AGE 14:1-14:10
     Route: 048
  2. OLANZAPINE [Suspect]
     Active Substance: OLANZAPINE
     Indication: Major depression
     Dosage: 2.5 MG PO QHS-14:1-14:2
     Route: 048
  3. OLANZAPINE [Suspect]
     Active Substance: OLANZAPINE
     Indication: Antipsychotic therapy
  4. METHYLPHENIDATE [Suspect]
     Active Substance: METHYLPHENIDATE
     Indication: Antidepressant therapy
     Route: 048
  5. METHYLPHENIDATE [Suspect]
     Active Substance: METHYLPHENIDATE
     Route: 048
  6. QUETIAPINE [Suspect]
     Active Substance: QUETIAPINE
     Indication: Suicide attempt
     Route: 048
  7. QUETIAPINE [Suspect]
     Active Substance: QUETIAPINE
     Route: 048
  8. QUETIAPINE [Suspect]
     Active Substance: QUETIAPINE
     Route: 048
  9. BUPROPION [Suspect]
     Active Substance: BUPROPION
     Indication: Suicide attempt
  10. BUPROPION [Suspect]
     Active Substance: BUPROPION
     Route: 048
  11. BUPROPION [Suspect]
     Active Substance: BUPROPION
     Route: 048
  12. DULOXETINE [Concomitant]
     Active Substance: DULOXETINE
     Indication: Major depression
     Route: 048
  13. DULOXETINE [Concomitant]
     Active Substance: DULOXETINE
     Indication: Antipsychotic therapy
  14. ESCITALOPRAM [Concomitant]
     Active Substance: ESCITALOPRAM OXALATE
     Indication: Major depression
     Route: 048
  15. ARIPIPRAZOLE [Concomitant]
     Active Substance: ARIPIPRAZOLE
     Indication: Antipsychotic therapy
     Dosage: 14:2-14:6
     Route: 048
  16. ARIPIPRAZOLE [Concomitant]
     Active Substance: ARIPIPRAZOLE
     Indication: Major depression
  17. DESVENLAFAXINE [Concomitant]
     Active Substance: DESVENLAFAXINE
     Indication: Major depression
     Route: 048

REACTIONS (11)
  - Dyspepsia [Unknown]
  - Drug ineffective [Unknown]
  - Galactorrhoea [Unknown]
  - Hyperprolactinaemia [Unknown]
  - Overdose [Unknown]
  - Tachycardia [Unknown]
  - Blood sodium increased [Unknown]
  - Protein total increased [Unknown]
  - Blood magnesium increased [Unknown]
  - High density lipoprotein increased [Unknown]
  - Proteinuria [Unknown]
